FAERS Safety Report 8817390 (Version 3)
Quarter: 2012Q4

REPORT INFORMATION
  Report Type: 
  Country: US (occurrence: US)
  Receive Date: 20121004
  Receipt Date: 20121024
  Transmission Date: 20130627
  Serious: Yes (Hospitalization, Other)
  Sender: FDA-Public Use
  Company Number: US-PFIZER INC-2012243128

PATIENT
  Age: 72 Year
  Sex: Male
  Weight: 99.77 kg

DRUGS (7)
  1. GEODON [Suspect]
     Indication: BIPOLAR DISORDER
     Dosage: UNK, 2x/day
     Dates: start: 201209
  2. GEODON [Suspect]
     Indication: DEPRESSION
     Dosage: UNK
     Route: 048
     Dates: start: 201210
  3. LEVOTHYROXINE SODIUM [Suspect]
     Indication: HYPOTHYROIDISM
     Dosage: UNK
  4. ATIVAN [Suspect]
     Indication: ANXIETY
     Dosage: UNK
     Dates: end: 201209
  5. ATIVAN [Suspect]
     Dosage: UNK
     Dates: start: 201210
  6. SIMVASTATIN [Suspect]
     Indication: BLOOD CHOLESTEROL ABNORMAL
     Dosage: UNK
  7. PERPHENAZINE [Suspect]
     Indication: BIPOLAR DISORDER
     Dosage: UNK
     Dates: end: 201209

REACTIONS (5)
  - Dizziness [Unknown]
  - Fall [Unknown]
  - Confusional state [Unknown]
  - Dehydration [Unknown]
  - Depression [Not Recovered/Not Resolved]
